FAERS Safety Report 9938125 (Version 1)
Quarter: 2014Q1

REPORT INFORMATION
  Report Type: Spontaneous
  Country: FR (occurrence: FR)
  Receive Date: 20140303
  Receipt Date: 20140303
  Transmission Date: 20141002
  Serious: Yes (Hospitalization, Other)
  Sender: FDA-Public Use
  Company Number: FR-009507513-1402FRA012418

PATIENT
  Age: 37 Year
  Sex: Male

DRUGS (6)
  1. NASONEX [Suspect]
     Indication: INFLUENZA
     Dosage: UNK
     Route: 045
     Dates: start: 20140110, end: 20140210
  2. EFFEXOR [Suspect]
     Indication: DEPRESSION
     Dosage: 37.5 MG, QD
     Route: 048
     Dates: start: 201312, end: 20140210
  3. PULMODEXANE [Suspect]
     Indication: INFLUENZA
     Dosage: UNK
     Route: 048
     Dates: start: 20140203, end: 20140210
  4. ACETAMINOPHEN [Suspect]
     Indication: INFLUENZA
     Dosage: 1 G, TID
     Route: 048
     Dates: start: 20140203, end: 20140210
  5. CEFPODOXIME PROXETIL [Suspect]
     Indication: INFLUENZA
     Dosage: 200 MG, BID
     Route: 065
     Dates: start: 20140203, end: 20140210
  6. CARBOLEVURE [Suspect]
     Dosage: UNK
     Route: 048
     Dates: start: 20140110, end: 20140210

REACTIONS (1)
  - Pancreatitis acute [Recovered/Resolved]
